FAERS Safety Report 9030321 (Version 4)
Quarter: 2013Q2

REPORT INFORMATION
  Report Type: Spontaneous
  Country: CA (occurrence: CA)
  Receive Date: 20130122
  Receipt Date: 20130517
  Transmission Date: 20140414
  Serious: Yes (Other)
  Sender: FDA-Public Use
  Company Number: CA-PFIZER INC-2013020283

PATIENT
  Age: 65 Year
  Sex: Male
  Weight: 84 kg

DRUGS (8)
  1. INLYTA [Suspect]
     Indication: RENAL CANCER
     Dosage: 5 MG, 2X/DAY
     Dates: start: 201210
  2. TAMSULOSIN [Concomitant]
     Dosage: UNK
  3. PANTOLOC [Concomitant]
     Dosage: UNK
  4. METFORMIN [Concomitant]
     Dosage: UNK
  5. FINASTERIDE [Concomitant]
     Dosage: UNK
  6. SYNTHROID [Concomitant]
     Dosage: UNK
  7. QVAR [Concomitant]
     Dosage: UNK
  8. CELEXA [Concomitant]
     Dosage: UNK

REACTIONS (2)
  - Convulsion [Recovered/Resolved]
  - Hypertension [Recovered/Resolved]
